FAERS Safety Report 21221776 (Version 1)
Quarter: 2022Q3

REPORT INFORMATION
  Report Type: Spontaneous
  Country: US (occurrence: US)
  Receive Date: 20220817
  Receipt Date: 20220817
  Transmission Date: 20221026
  Serious: Yes (Other)
  Sender: FDA-Public Use
  Company Number: US-SA-2022SA335177

PATIENT
  Sex: Female

DRUGS (4)
  1. KEVZARA [Suspect]
     Active Substance: SARILUMAB
     Dosage: 200 MG/1.14ML
     Route: 065
  2. RINVOQ [Suspect]
     Active Substance: UPADACITINIB
     Indication: Rheumatoid arthritis
     Dosage: 15 MG, QD
     Route: 048
     Dates: start: 20210701
  3. LOSARTAN POTASSIUM [Concomitant]
     Active Substance: LOSARTAN POTASSIUM
  4. XELJANZ [Concomitant]
     Active Substance: TOFACITINIB CITRATE

REACTIONS (3)
  - Rheumatoid arthritis [Unknown]
  - Diarrhoea [Unknown]
  - Drug ineffective [Unknown]
